FAERS Safety Report 23467280 (Version 6)
Quarter: 2024Q4

REPORT INFORMATION
  Report Type: Spontaneous
  Country: US (occurrence: US)
  Receive Date: 20240201
  Receipt Date: 20241113
  Transmission Date: 20250115
  Serious: Yes (Other)
  Sender: PFIZER
  Company Number: US-PFIZER INC-PV202400013931

PATIENT
  Age: 76 Year
  Sex: Female

DRUGS (28)
  1. IBRANCE [Suspect]
     Active Substance: PALBOCICLIB
     Indication: Breast cancer female
     Dosage: 125 MG, CYCLIC (TAKE 1 TABLET ONCE DAILY FOR 21 DAYS OUT OF A 28 DAY CYCLE)
     Route: 048
     Dates: start: 20240110
  2. IBRANCE [Suspect]
     Active Substance: PALBOCICLIB
     Dosage: TAKE 1 TABLET BY MOUTH DAILY FOR 21 DAYS OUT OF A 28 DAY CYCLE
     Route: 048
  3. ALLEGRA ALLERGY [Concomitant]
     Active Substance: FEXOFENADINE HYDROCHLORIDE
     Dosage: UNK
  4. BENADRYL [Concomitant]
     Active Substance: DIPHENHYDRAMINE HYDROCHLORIDE
     Dosage: UNK
  5. CARDIZEM CD [Concomitant]
     Active Substance: DILTIAZEM HYDROCHLORIDE
     Dosage: UNK (240 MG/24)
  6. VITAMINS [Concomitant]
     Active Substance: VITAMINS
     Dosage: UNK
  7. GAUZE PAD [Concomitant]
     Dosage: UNK, [2 X 2]
  8. OMEGA 3 KRILL [Concomitant]
     Dosage: UNK
  9. OSTEO BI-FLEX [ASCORBIC ACID;BOSWELLIA SERRATA RESIN;CHONDROITIN SULFA [Concomitant]
     Dosage: UNK
  10. PAXIL CR [Concomitant]
     Active Substance: PAROXETINE HYDROCHLORIDE
     Dosage: UNK
  11. HERBALS\TURMERIC [Concomitant]
     Active Substance: HERBALS\TURMERIC
     Dosage: UNK
  12. CALCIUM [Concomitant]
     Active Substance: CALCIUM
     Dosage: UNK
  13. CYANOCOBALAMIN [Concomitant]
     Active Substance: CYANOCOBALAMIN
     Dosage: UNK
  14. EPINEPHRINE [Concomitant]
     Active Substance: EPINEPHRINE
     Dosage: UNK
  15. FAMOTIDINE [Concomitant]
     Active Substance: FAMOTIDINE
     Dosage: UNK
  16. FISH OIL [Concomitant]
     Active Substance: FISH OIL
     Dosage: UNK
  17. LORAZEPAM [Concomitant]
     Active Substance: LORAZEPAM
     Dosage: UNK
  18. LIGHT MINERAL OIL [Concomitant]
     Active Substance: LIGHT MINERAL OIL
     Dosage: UNK
  19. VITAMIN B12 [Concomitant]
     Active Substance: CYANOCOBALAMIN
     Dosage: 1000 TR
  20. VITAMIN D3 [Concomitant]
     Active Substance: CHOLECALCIFEROL
     Dosage: UNK
  21. DILTIAZEM [Concomitant]
     Active Substance: DILTIAZEM
     Dosage: UNK
  22. ALLEGRA [Concomitant]
     Active Substance: FEXOFENADINE HYDROCHLORIDE
     Dosage: UNK
  23. HYDRALAZINE [Concomitant]
     Active Substance: HYDRALAZINE HYDROCHLORIDE
     Dosage: UNK
  24. MORPHINE SULFATE [Concomitant]
     Active Substance: MORPHINE SULFATE
     Dosage: UNK
  25. MOVANTIK [Concomitant]
     Active Substance: NALOXEGOL OXALATE
     Dosage: UNK
  26. ANASTROZOLE [Concomitant]
     Active Substance: ANASTROZOLE
     Dosage: UNK
  27. ASPIRIN [Concomitant]
     Active Substance: ASPIRIN
     Dosage: UNK
  28. EZETIMIBE [Concomitant]
     Active Substance: EZETIMIBE
     Dosage: UNK

REACTIONS (4)
  - Neutropenia [Unknown]
  - Peripheral swelling [Unknown]
  - White blood cell count increased [Unknown]
  - COVID-19 [Not Recovered/Not Resolved]
